FAERS Safety Report 7468932-8 (Version None)
Quarter: 2011Q2

REPORT INFORMATION
  Report Type: 
  Country: None (occurrence: None)
  Receive Date: 20110428
  Receipt Date: 20110420
  Transmission Date: 20111010
  Serious: Yes (Death)
  Sender: FDA-Public Use
  Company Number: GER/UKI/11/0017818

PATIENT
  Age: 89 Year
  Sex: Female

DRUGS (17)
  1. SINEMET [Concomitant]
  2. ROPINIROLE [Suspect]
     Indication: PARKINSON'S DISEASE
     Dosage: 3 MG, 1 IN 1 D, ORAL
     Route: 048
  3. AMOXICILLIN [Concomitant]
  4. CARBIDOPA (CARBIDOPA) [Concomitant]
  5. FUROSEMIDE [Concomitant]
  6. DIGOXIN [Concomitant]
  7. FORTISIP (FORTISIP) [Concomitant]
  8. SINEMET CR [Concomitant]
  9. BISOPROLOL FUMARATE [Concomitant]
  10. CARBIMAZOLE (CARBIMAZOLE) [Concomitant]
  11. IRON (IRON) [Concomitant]
  12. AMOXICILLIN TRIHYDRATE [Concomitant]
  13. ASPIRIN [Concomitant]
  14. RISPERIDONE [Suspect]
     Indication: PARKINSON'S DISEASE
     Dosage: ORAL
     Route: 048
  15. SPARTEINE (SPARTEINE) [Concomitant]
  16. LACTULOSE [Concomitant]
  17. LEVODOPA (LEVODOPA) [Concomitant]

REACTIONS (2)
  - MEDICATION ERROR [None]
  - WRONG DRUG ADMINISTERED [None]
